FAERS Safety Report 4971424-9 (Version None)
Quarter: 2006Q2

REPORT INFORMATION
  Report Type: 
  Country: None (occurrence: None)
  Receive Date: 20060411
  Receipt Date: 20060411
  Transmission Date: 20061013
  Serious: Yes (Other)
  Sender: FDA-Public Use
  Company Number: None

PATIENT
  Sex: Female
  Weight: 88.4514 kg

DRUGS (6)
  1. ZOCOR [Suspect]
     Indication: HYPERLIPIDAEMIA
     Dosage: 80 MG DAILY ORAL
     Route: 048
  2. LIPITOR [Suspect]
  3. PRAVACHOL [Suspect]
  4. PRAVACHOL [Suspect]
  5. VYTORIN [Suspect]
  6. ZOCOR [Suspect]

REACTIONS (1)
  - MYALGIA [None]
